FAERS Safety Report 9218244 (Version 1)
Quarter: 2013Q2

REPORT INFORMATION
  Report Type: Spontaneous
  Country: JP (occurrence: JP)
  Receive Date: 20130408
  Receipt Date: 20130408
  Transmission Date: 20140414
  Serious: Yes (Life-Threatening, Hospitalization)
  Sender: FDA-Public Use
  Company Number: JP-009507513-2011SP030684

PATIENT
  Age: 60 Year
  Sex: Female
  Weight: 46 kg

DRUGS (7)
  1. PEGINTRON [Suspect]
     Indication: CHRONIC HEPATITIS C
     Dosage: 80 MICROGRAM, QW
     Route: 058
     Dates: start: 20110211, end: 20110330
  2. PEGINTRON [Suspect]
     Dosage: 100 MICROGRAM, QW
     Route: 058
     Dates: start: 20110317, end: 20110623
  3. REBETOL [Suspect]
     Indication: CHRONIC HEPATITIS C
     Dosage: 600 MG, QD
     Route: 048
     Dates: start: 20110211, end: 20110629
  4. DOGMATYL [Suspect]
     Indication: DEPRESSIVE SYMPTOM
     Dosage: 100 MG, BID
     Route: 048
     Dates: start: 20110221, end: 20110629
  5. MYSLEE [Suspect]
     Indication: INSOMNIA
     Dosage: 10 MG, QD
     Route: 048
     Dates: start: 20110224, end: 20110629
  6. LOXONIN [Suspect]
     Indication: PYREXIA
     Dosage: UNK UNK, PRN
     Route: 048
     Dates: start: 20110211, end: 20110629
  7. OMEPRAL [Suspect]
     Indication: PROPHYLAXIS AGAINST GASTROINTESTINAL ULCER
     Dosage: 20 MG, QD
     Route: 048
     Dates: start: 20110303, end: 20110629

REACTIONS (4)
  - Interstitial lung disease [Unknown]
  - Insomnia [Recovering/Resolving]
  - Depression [Recovering/Resolving]
  - Pyrexia [Recovered/Resolved]
